FAERS Safety Report 13216371 (Version 1)
Quarter: 2017Q1

REPORT INFORMATION
  Report Type: Spontaneous
  Country: US (occurrence: US)
  Receive Date: 20170210
  Receipt Date: 20170210
  Transmission Date: 20170428
  Serious: No
  Sender: FDA-Public Use
  Company Number: US-TEVA-733024ACC

PATIENT
  Age: 66 Year
  Sex: Male

DRUGS (14)
  1. LOSARTAN POTTASSIUM [Concomitant]
  2. VERAPAMIL [Concomitant]
     Active Substance: VERAPAMIL HYDROCHLORIDE
  3. TRIAMTERENE/HYDROCHLOROTHIAZIDE [Concomitant]
     Active Substance: HYDROCHLOROTHIAZIDE\TRIAMTERENE
     Dosage: 75-50 MG
  4. FLONASE [Concomitant]
     Active Substance: FLUTICASONE PROPIONATE
     Dosage: SPRAY
  5. CRANBERRY. [Concomitant]
     Active Substance: CRANBERRY
  6. VITAMIN D [Concomitant]
     Active Substance: CHOLECALCIFEROL
     Dosage: 1000 UNIT
  7. CENTRUM [Concomitant]
     Active Substance: VITAMINS
     Dosage: SILVER
  8. AMLODIPINE [Concomitant]
     Active Substance: AMLODIPINE BESYLATE
  9. PRAVASTATIN. [Concomitant]
     Active Substance: PRAVASTATIN
  10. GLUCOSAMINE/CHONDROITIN [Concomitant]
     Dosage: 500-400
  11. COPAXONE [Suspect]
     Active Substance: GLATIRAMER ACETATE
     Indication: MULTIPLE SCLEROSIS
     Dosage: PRE FILLED SYRINGE
     Route: 058
     Dates: start: 20140828, end: 20161114
  12. TYLENOL/CODIENE [Concomitant]
  13. ZYRTEC ALLERGY CAPSULE [Concomitant]
  14. BYSTOLIC [Concomitant]
     Active Substance: NEBIVOLOL HYDROCHLORIDE

REACTIONS (1)
  - Immediate post-injection reaction [Unknown]

NARRATIVE: CASE EVENT DATE: 20161114
